FAERS Safety Report 8461550-4 (Version None)
Quarter: 2012Q2

REPORT INFORMATION
  Report Type: 
  Country: None (occurrence: None)
  Receive Date: 20120625
  Receipt Date: 20120612
  Transmission Date: 20120825
  Serious: Yes (Other)
  Sender: FDA-Public Use
  Company Number: PHHY2012AU035268

PATIENT
  Sex: Female

DRUGS (3)
  1. SANDOSTATIN LAR [Suspect]
     Indication: ACROMEGALY
     Dosage: 20 MG, EVERY THREE WEEKS
     Route: 030
     Dates: start: 20120514
  2. SANDOSTATIN [Suspect]
     Dosage: 0.05 MG, AS WHEN REQUIRED
     Route: 058
     Dates: start: 20120529
  3. SANDOSTATIN [Suspect]
     Indication: ACROMEGALY
     Dosage: 0.05 MG, AS WHEN REQUIRED
     Route: 058

REACTIONS (4)
  - BREAST MASS [None]
  - DRUG INEFFECTIVE [None]
  - MALAISE [None]
  - INFECTION [None]
